FAERS Safety Report 18439105 (Version 1)
Quarter: 2020Q4

REPORT INFORMATION
  Report Type: Report from Study
  Country: NL (occurrence: NL)
  Receive Date: 20201028
  Receipt Date: 20201028
  Transmission Date: 20210114
  Serious: Yes (Hospitalization, Other)
  Sender: FDA-Public Use
  Company Number: NL-GILEAD-2020-0460624

PATIENT
  Age: 64 Year
  Sex: Male
  Weight: 91 kg

DRUGS (21)
  1. ATORVASTATIN [Concomitant]
     Active Substance: ATORVASTATIN
     Indication: PROPHYLAXIS
     Dosage: 20 MG
     Route: 048
     Dates: start: 20200404, end: 20200416
  2. OXYGEN. [Concomitant]
     Active Substance: OXYGEN
  3. MOVICOLON [Concomitant]
     Active Substance: POLYETHYLENE GLYCOL 3350\POTASSIUM CHLORIDE\SODIUM BICARBONATE\SODIUM CHLORIDE
     Indication: LAXATIVE SUPPORTIVE CARE
     Route: 048
     Dates: start: 20200404
  4. SDD SUSPENSION [Concomitant]
     Dosage: UNK
     Route: 048
     Dates: start: 20200404
  5. NADROPARIN [Concomitant]
     Active Substance: NADROPARIN
     Dosage: UNK
     Route: 058
     Dates: start: 20200416
  6. METOCLOPRAMIDE. [Concomitant]
     Active Substance: METOCLOPRAMIDE
     Indication: ANTIEMETIC SUPPORTIVE CARE
     Dosage: UNK
     Dates: start: 20200420, end: 20200421
  7. CHLOROQUINE. [Interacting]
     Active Substance: CHLOROQUINE
     Indication: COVID-19
     Dosage: 600 MG LOADING DOSE
     Route: 065
  8. REMDESIVIR. [Suspect]
     Active Substance: REMDESIVIR
     Indication: COVID-19
     Dosage: 100 MG, QD
     Route: 042
     Dates: start: 20200416, end: 20200420
  9. ROCURONIUM [Concomitant]
     Active Substance: ROCURONIUM BROMIDE
     Indication: MUSCLE RELAXANT THERAPY
     Dosage: 7 UG
     Route: 042
     Dates: start: 20200414
  10. PARACETAMOL [Concomitant]
     Active Substance: ACETAMINOPHEN
     Dosage: 1000 MG
     Route: 048
     Dates: start: 20200401
  11. COLISTIN [Concomitant]
     Active Substance: COLISTIN
     Dosage: 10000 IU
     Route: 055
     Dates: start: 20200416
  12. ORABASE BABY [Concomitant]
     Dosage: 0.5 MG
     Route: 002
     Dates: start: 20200404
  13. AMLODIPINE [Concomitant]
     Active Substance: AMLODIPINE BESYLATE
     Dosage: 10 MG
     Route: 048
     Dates: start: 20200416
  14. MIDAZOLAM. [Concomitant]
     Active Substance: MIDAZOLAM
     Indication: SEDATIVE THERAPY
     Dosage: 5 MG
     Route: 042
     Dates: start: 20200409
  15. SUFENTANIL [Concomitant]
     Active Substance: SUFENTANIL
     Dosage: 50 UG
     Route: 042
     Dates: start: 20200405
  16. SIMVASTATIN. [Concomitant]
     Active Substance: SIMVASTATIN
     Indication: BLOOD CHOLESTEROL DECREASED
     Dosage: UNK
  17. TOBRAMYCINE [TOBRAMYCIN] [Concomitant]
     Active Substance: TOBRAMYCIN
     Indication: ANTIBIOTIC THERAPY
     Dosage: UNK
     Dates: start: 20200421, end: 20200421
  18. AMIODARONE [Concomitant]
     Active Substance: AMIODARONE
     Indication: ATRIAL FIBRILLATION
     Dosage: 700 MG, UNK
     Dates: start: 20200418
  19. CLONIDINE. [Concomitant]
     Active Substance: CLONIDINE
     Indication: SEDATIVE THERAPY
     Dosage: 1200 UG
     Route: 042
     Dates: start: 20200403
  20. CEFUROXIM [CEFUROXIME] [Concomitant]
     Active Substance: CEFUROXIME
     Indication: ANTIBIOTIC THERAPY
     Dosage: UNK
     Dates: start: 20200421, end: 20200421
  21. ORABASE [DEXAMETHASONE] [Concomitant]
     Route: 002
     Dates: start: 20200404

REACTIONS (4)
  - Drug interaction [Unknown]
  - Hepatotoxicity [Unknown]
  - Acute hepatic failure [Recovered/Resolved]
  - Respiratory failure [Unknown]

NARRATIVE: CASE EVENT DATE: 20200417
